FAERS Safety Report 20026482 (Version 1)
Quarter: 2021Q4

REPORT INFORMATION
  Report Type: Report from Study
  Country: CA (occurrence: CA)
  Receive Date: 20211102
  Receipt Date: 20211102
  Transmission Date: 20220303
  Serious: Yes (Other)
  Sender: FDA-Public Use
  Company Number: CA-OTSUKA-2021_023702

PATIENT
  Sex: Female

DRUGS (1)
  1. CEDAZURIDINE\DECITABINE [Suspect]
     Active Substance: CEDAZURIDINE\DECITABINE
     Indication: Myelodysplastic syndrome
     Dosage: UNK
     Route: 065
     Dates: start: 20210621

REACTIONS (6)
  - Thrombosis [Unknown]
  - Feeling abnormal [Unknown]
  - Asthenia [Unknown]
  - Constipation [Unknown]
  - Rectal haemorrhage [Unknown]
  - Nausea [Unknown]
